FAERS Safety Report 25747270 (Version 2)
Quarter: 2025Q3

REPORT INFORMATION
  Report Type: Report from Study
  Country: US (occurrence: US)
  Receive Date: 20250901
  Receipt Date: 20250926
  Transmission Date: 20251020
  Serious: Yes (Other)
  Sender: MALLINCKRODT
  Company Number: US-MALLINCKRODT-MNK202505173

PATIENT
  Sex: Female

DRUGS (1)
  1. CORTICOTROPIN [Suspect]
     Active Substance: CORTICOTROPIN
     Indication: Uveitis

REACTIONS (5)
  - Arthropathy [Unknown]
  - Eye swelling [Recovering/Resolving]
  - Injection site pain [Unknown]
  - Injection site discharge [Unknown]
  - Incorrect dose administered [Unknown]
